FAERS Safety Report 23899152 (Version 1)
Quarter: 2024Q2

REPORT INFORMATION
  Report Type: Spontaneous
  Country: US (occurrence: US)
  Receive Date: 20240526
  Receipt Date: 20240526
  Transmission Date: 20240715
  Serious: Yes (Hospitalization)
  Sender: FDA-Public Use
  Company Number: US-DRL-USA-LIT/USA/24/0007431

PATIENT
  Age: 28 Year
  Sex: Male

DRUGS (7)
  1. PROPOFOL [Suspect]
     Active Substance: PROPOFOL
     Indication: Agitation
  2. KETAMINE [Concomitant]
     Active Substance: KETAMINE
     Indication: Agitation
  3. DROPERIDOL [Concomitant]
     Active Substance: DROPERIDOL
     Indication: Agitation
  4. MIDAZOLAM [Concomitant]
     Active Substance: MIDAZOLAM
     Indication: Agitation
  5. HERBALS\MITRAGYNINE [Concomitant]
     Active Substance: HERBALS\MITRAGYNINE
     Dosage: SMOKING
     Route: 055
  6. SERTRALINE [Concomitant]
     Active Substance: SERTRALINE HYDROCHLORIDE
     Indication: Antidepressant therapy
  7. BUPROPION [Concomitant]
     Active Substance: BUPROPION
     Indication: Antidepressant therapy

REACTIONS (1)
  - Drug ineffective for unapproved indication [Unknown]
